FAERS Safety Report 18263341 (Version 1)
Quarter: 2020Q3

REPORT INFORMATION
  Report Type: Spontaneous
  Country: GB (occurrence: GB)
  Receive Date: 20200914
  Receipt Date: 20200914
  Transmission Date: 20201103
  Serious: Yes (Life-Threatening)
  Sender: FDA-Public Use
  Company Number: GB-MYLANLABS-2020M1077459

PATIENT
  Age: 60 Year
  Sex: Female
  Weight: 96 kg

DRUGS (12)
  1. ATORVASTATIN [Concomitant]
     Active Substance: ATORVASTATIN
     Dosage: 1 DOSAGE FORM, QD
     Dates: start: 20200219
  2. ALOGLIPTIN. [Concomitant]
     Active Substance: ALOGLIPTIN
     Dosage: 1 DOSAGE FORM, QD
     Dates: start: 20200219, end: 20200603
  3. PARACETAMOL [Concomitant]
     Active Substance: ACETAMINOPHEN
     Dosage: UNK UNK, PRN (TAKE EVERY 6 HOURS)
     Dates: start: 20060119
  4. FOSTAIR [Concomitant]
     Active Substance: BECLOMETHASONE\FORMOTEROL
     Dosage: 1 PUFF TWICE A DAY PLUS 1 EXTRA PUFF AS NEEDED...
     Dates: start: 20180202
  5. CETIRIZINE [Concomitant]
     Active Substance: CETIRIZINE HYDROCHLORIDE
     Dosage: 1 DOSAGE FORM, QD
     Dates: start: 20030220
  6. METFORMIN [Concomitant]
     Active Substance: METFORMIN HYDROCHLORIDE
     Dosage: 4 DOSAGE FORM, QD
     Dates: start: 20200219
  7. EPIPEN [Concomitant]
     Active Substance: EPINEPHRINE
     Dosage: UNK (USE AS DIRECTED)
     Dates: start: 20030122
  8. MONTELUKAST [Concomitant]
     Active Substance: MONTELUKAST SODIUM
     Dosage: 1 DOSAGE FORM, QD (AT NIGHT)
     Dates: start: 20200219
  9. VAGIFEM [Concomitant]
     Active Substance: ESTRADIOL
     Dosage: INSERT 1 DAILY FOR 2 WEEKS THEN 1 P
     Dates: start: 20170328
  10. IBUPROFEN. [Concomitant]
     Active Substance: IBUPROFEN
     Dosage: 3 DOSAGE FORM, QD (APPLY)
     Dates: start: 20200804
  11. PENICILLAMINE [Suspect]
     Active Substance: PENICILLAMINE
     Indication: PRODUCT USED FOR UNKNOWN INDICATION
     Dosage: 125 MILLIGRAM
     Dates: start: 20200811
  12. CETRABEN                           /01690401/ [Concomitant]
     Dosage: UNK UNK, PRN (APPLY)
     Dates: start: 20170328

REACTIONS (1)
  - Anaphylactic reaction [Recovered/Resolved with Sequelae]

NARRATIVE: CASE EVENT DATE: 20200811
